FAERS Safety Report 6413559-X (Version None)
Quarter: 2009Q4

REPORT INFORMATION
  Report Type: 
  Country: None (occurrence: None)
  Receive Date: 20091026
  Receipt Date: 20091013
  Transmission Date: 20100525
  Serious: Yes (Disabling, Other)
  Sender: FDA-Public Use
  Company Number: PHHY2009BR44628

PATIENT
  Age: 79 Year
  Sex: Male
  Weight: 92 kg

DRUGS (3)
  1. DIOVAN [Suspect]
     Indication: CARDIAC DISORDER
     Dosage: 2 DF (80 MG) DAILY
     Route: 048
  2. SEROQUEL [Concomitant]
  3. ERANZ [Concomitant]

REACTIONS (14)
  - ABNORMAL BEHAVIOUR [None]
  - AGGRESSION [None]
  - CARDIAC DISORDER [None]
  - CONDITION AGGRAVATED [None]
  - DEMENTIA ALZHEIMER'S TYPE [None]
  - FALL [None]
  - IMPATIENCE [None]
  - LOSS OF CONTROL OF LEGS [None]
  - MEMORY IMPAIRMENT [None]
  - MOVEMENT DISORDER [None]
  - PARKINSON'S DISEASE [None]
  - SERUM FERRITIN INCREASED [None]
  - SOMNOLENCE [None]
  - WHEELCHAIR USER [None]
